FAERS Safety Report 12236103 (Version 1)
Quarter: 2016Q2

REPORT INFORMATION
  Report Type: Spontaneous
  Country: KR (occurrence: KR)
  Receive Date: 20160404
  Receipt Date: 20160404
  Transmission Date: 20160815
  Serious: Yes (Hospitalization)
  Sender: FDA-Public Use
  Company Number: KR-IMPAX LABORATORIES, INC-2016-IPXL-00335

PATIENT
  Age: 21 Year
  Sex: Female

DRUGS (3)
  1. BLONANSERIN [Suspect]
     Active Substance: BLONANSERIN
     Indication: SCHIZOPHRENIA
     Dosage: 4 MG, DAILY
     Route: 065
  2. METHYLPHENIDATE HYDROCHLORIDE. [Suspect]
     Active Substance: METHYLPHENIDATE HYDROCHLORIDE
     Indication: ATTENTION DEFICIT/HYPERACTIVITY DISORDER
     Dosage: 10 MG, UNK
     Route: 065
     Dates: start: 20130910
  3. METHYLPHENIDATE HYDROCHLORIDE. [Suspect]
     Active Substance: METHYLPHENIDATE HYDROCHLORIDE
     Dosage: 20 MG, UNK
     Route: 065
     Dates: start: 20131029, end: 201410

REACTIONS (2)
  - Schizophrenia [Recovering/Resolving]
  - Parkinsonism [Recovering/Resolving]

NARRATIVE: CASE EVENT DATE: 201410
